FAERS Safety Report 10200196 (Version 1)
Quarter: 2014Q2

REPORT INFORMATION
  Report Type: Spontaneous
  Country: US (occurrence: US)
  Receive Date: 20140527
  Receipt Date: 20140527
  Transmission Date: 20141212
  Serious: No
  Sender: FDA-Public Use
  Company Number: US-ENDO PHARMACEUTICALS INC.-GILD20140002

PATIENT
  Age: 18 Year
  Sex: Female

DRUGS (2)
  1. GILDESS FE 1/20 TABLETS [Suspect]
     Indication: PRODUCT USED FOR UNKNOWN INDICATION
     Dosage: 1/20
     Route: 048
     Dates: start: 201308
  2. JUNEL [Concomitant]
     Indication: MENORRHAGIA
     Dosage: 1 TABLET
     Route: 048
     Dates: end: 201308

REACTIONS (2)
  - Polymenorrhoea [Not Recovered/Not Resolved]
  - Drug ineffective [Not Recovered/Not Resolved]
